FAERS Safety Report 5279988-5 (Version None)
Quarter: 2007Q1

REPORT INFORMATION
  Report Type: 
  Country: None (occurrence: None)
  Receive Date: 20070329
  Receipt Date: 20070320
  Transmission Date: 20070707
  Serious: No
  Sender: FDA-Public Use
  Company Number: GB-BAXTER-2007BH003026

PATIENT
  Age: 4 Year
  Sex: Female

DRUGS (2)
  1. FORANE [Suspect]
     Indication: SEDATION
     Route: 055
  2. CORTICOSTEROIDS [Concomitant]
     Indication: DRUG USE FOR UNKNOWN INDICATION
     Dosage: DOSE UNIT:UNKNOWN
     Route: 042

REACTIONS (1)
  - DRUG WITHDRAWAL SYNDROME [None]
